FAERS Safety Report 15165370 (Version 2)
Quarter: 2018Q3

REPORT INFORMATION
  Report Type: Spontaneous
  Country: US (occurrence: US)
  Receive Date: 20180719
  Receipt Date: 20180808
  Transmission Date: 20181010
  Serious: Yes (Disabling, Other)
  Sender: FDA-Public Use
  Company Number: US-REGENERON PHARMACEUTICALS, INC.-2018-29688

PATIENT

DRUGS (2)
  1. EYLEA [Suspect]
     Active Substance: AFLIBERCEPT
     Indication: NEOVASCULAR AGE-RELATED MACULAR DEGENERATION
     Dosage: 2 MG, Q8WKS, LEFT EYE
     Route: 031
     Dates: end: 20180625
  2. XALATAN [Concomitant]
     Active Substance: LATANOPROST
     Indication: PRODUCT USED FOR UNKNOWN INDICATION
     Dosage: 1 GTT, Q8H OU

REACTIONS (4)
  - Wrong technique in product usage process [Unknown]
  - Blindness unilateral [Not Recovered/Not Resolved]
  - Eye inflammation [Recovering/Resolving]
  - Hypotony of eye [Unknown]

NARRATIVE: CASE EVENT DATE: 20180625
